FAERS Safety Report 7208751-0 (Version None)
Quarter: 2011Q1

REPORT INFORMATION
  Report Type: 
  Country: None (occurrence: None)
  Receive Date: 20110104
  Receipt Date: 20101231
  Transmission Date: 20110831
  Serious: Yes (Death)
  Sender: FDA-Public Use
  Company Number: US-PFIZER INC-2011000539

PATIENT
  Age: 40 Year
  Sex: Male

DRUGS (11)
  1. SIMVASTATIN [Suspect]
     Route: 048
  2. GLYBURIDE [Suspect]
     Route: 048
  3. HYDRALAZINE [Suspect]
     Route: 048
  4. TAMSULOSIN [Suspect]
     Route: 048
  5. AMLODIPINE BESYLATE [Suspect]
     Route: 048
  6. ENALAPRIL MALEATE [Suspect]
     Route: 048
  7. NISOLDIPINE [Suspect]
     Route: 048
  8. ACETAMINOPHEN AND HYDROCODONE BITARTRATE [Suspect]
     Route: 048
  9. CLOPIDOGREL [Suspect]
     Route: 048
  10. FUROSEMIDE [Suspect]
     Route: 048
  11. LEVOTHYROXINE [Suspect]
     Route: 048

REACTIONS (2)
  - COMPLETED SUICIDE [None]
  - INTENTIONAL DRUG MISUSE [None]
